FAERS Safety Report 24830577 (Version 3)
Quarter: 2025Q3

REPORT INFORMATION
  Report Type: Report from Study
  Country: EU (occurrence: EU)
  Receive Date: 20250110
  Receipt Date: 20250803
  Transmission Date: 20251020
  Serious: Yes (Hospitalization, Other)
  Sender: ALEXION PHARMACEUTICALS
  Company Number: EU-AstraZeneca-CH-00775595A

PATIENT
  Age: 43 Year
  Sex: Female

DRUGS (1)
  1. SOLIRIS [Suspect]
     Active Substance: ECULIZUMAB
     Indication: Atypical haemolytic uraemic syndrome

REACTIONS (15)
  - Renal failure [Recovering/Resolving]
  - Renal impairment [Recovering/Resolving]
  - Diarrhoea [Unknown]
  - Depression [Unknown]
  - Anger [Unknown]
  - Emotional disorder [Unknown]
  - Illness anxiety disorder [Unknown]
  - Immunodeficiency [Unknown]
  - Hypertension [Unknown]
  - Anaemia [Unknown]
  - Vein disorder [Unknown]
  - Nasopharyngitis [Unknown]
  - Gastroenteritis [Unknown]
  - Renal pain [Unknown]
  - Vascular injury [Unknown]

NARRATIVE: CASE EVENT DATE: 20190101
